FAERS Safety Report 20838134 (Version 1)
Quarter: 2022Q2

REPORT INFORMATION
  Report Type: Spontaneous
  Country: US (occurrence: None)
  Receive Date: 20220516
  Receipt Date: 20220516
  Transmission Date: 20220720
  Serious: No
  Sender: FDA-Public Use
  Company Number: None

PATIENT
  Age: 55 Year
  Sex: Female
  Weight: 92.7 kg

DRUGS (8)
  1. LEVOTHYROXINE SODIUM [Suspect]
     Active Substance: LEVOTHYROXINE SODIUM
     Indication: Hypothyroidism
     Dosage: OTHER STRENGTH : MCG;?OTHER QUANTITY : 1 TABLET(S);?
     Route: 048
  2. LORATADINE [Concomitant]
     Active Substance: LORATADINE
  3. OMEPRAZOLE [Concomitant]
     Active Substance: OMEPRAZOLE
  4. EPIPEN [Concomitant]
     Active Substance: EPINEPHRINE
  5. Ketotfen fumerate [Concomitant]
  6. PHENYLEPHRINE HCL [Concomitant]
     Active Substance: PHENYLEPHRINE HYDROCHLORIDE
  7. MIRALAX [Concomitant]
     Active Substance: POLYETHYLENE GLYCOL 3350
  8. Vitamin D - Calcium [Concomitant]

REACTIONS (7)
  - Product substitution issue [None]
  - Product physical issue [None]
  - Gastrointestinal pain [None]
  - Bowel movement irregularity [None]
  - Weight decreased [None]
  - Product physical issue [None]
  - Insomnia [None]

NARRATIVE: CASE EVENT DATE: 20220516
